FAERS Safety Report 11129365 (Version 3)
Quarter: 2015Q3

REPORT INFORMATION
  Report Type: Spontaneous
  Country: US (occurrence: US)
  Receive Date: 20150521
  Receipt Date: 20150727
  Transmission Date: 20151125
  Serious: Yes (Other)
  Sender: FDA-Public Use
  Company Number: US-ELI_LILLY_AND_COMPANY-US201505003774

PATIENT
  Age: 31 Year
  Sex: Male

DRUGS (5)
  1. GEMZAR [Suspect]
     Active Substance: GEMCITABINE HYDROCHLORIDE
     Indication: THYMIC CANCER METASTATIC
     Dosage: UNK
     Route: 065
     Dates: start: 20080428, end: 200906
  2. GEMZAR [Suspect]
     Active Substance: GEMCITABINE HYDROCHLORIDE
     Dosage: UNK
     Route: 065
     Dates: start: 20110124, end: 20110406
  3. PEMETREXED [Suspect]
     Active Substance: PEMETREXED
     Indication: THYMIC CANCER METASTATIC
     Dosage: UNK
     Route: 065
     Dates: start: 20101022, end: 20110112
  4. TYLENOL [Concomitant]
     Active Substance: ACETAMINOPHEN
  5. IBUPROFEN. [Concomitant]
     Active Substance: IBUPROFEN

REACTIONS (2)
  - Malignant neoplasm progression [Unknown]
  - Malignant neoplasm progression [Unknown]

NARRATIVE: CASE EVENT DATE: 200906
